FAERS Safety Report 5041045-0 (Version None)
Quarter: 2006Q2

REPORT INFORMATION
  Report Type: 
  Country: None (occurrence: None)
  Receive Date: 20060630
  Receipt Date: 20060630
  Transmission Date: 20061013
  Serious: Yes (Death)
  Sender: FDA-Public Use
  Company Number: None

PATIENT
  Sex: Female

DRUGS (1)
  1. MITOXANTRONE [Suspect]
     Indication: ACUTE MYELOID LEUKAEMIA
     Dosage: 6 MG/M2 DAY EVERY 12 HOURS IV
     Route: 042
     Dates: start: 20060420, end: 20060426

REACTIONS (4)
  - EJECTION FRACTION DECREASED [None]
  - HEART RATE INCREASED [None]
  - HYPOTENSION [None]
  - PERICARDIAL EFFUSION [None]
